FAERS Safety Report 6940695-1 (Version None)
Quarter: 2010Q3

REPORT INFORMATION
  Report Type: 
  Country: None (occurrence: None)
  Receive Date: 20100825
  Receipt Date: 20100813
  Transmission Date: 20110219
  Serious: Yes (Death)
  Sender: FDA-Public Use
  Company Number: HU-ROCHE-721108

PATIENT
  Age: 63 Year
  Sex: Female
  Weight: 65 kg

DRUGS (9)
  1. ROACTEMRA [Suspect]
     Indication: RHEUMATOID ARTHRITIS
     Dosage: FORM: INFUSION, DOSE ALSO REPORTED AS 8 MG/KG.
     Route: 042
     Dates: start: 20100812
  2. METHOTREXATE [Concomitant]
     Indication: RHEUMATOID ARTHRITIS
     Dosage: DRUG: METOTHREXATE EBEWE. START DATE: MID OF 2009.
     Route: 030
     Dates: start: 20090101
  3. MEDROL [Concomitant]
     Indication: RHEUMATOID ARTHRITIS
     Dosage: FREQUENCY: DAILY
     Route: 048
  4. BONIVA [Concomitant]
     Indication: OSTEOPOROSIS
     Route: 042
  5. ASPIRIN [Concomitant]
     Indication: HYPERTENSION
     Dosage: FREQUENCY: DAILY.
     Route: 048
  6. RANITIDINE HCL [Concomitant]
     Indication: PROPHYLAXIS
     Dosage: DRUG: RANITIDIN-B
  7. CONCOR PLUS [Concomitant]
     Indication: HYPERTENSION
  8. COVEREX [Concomitant]
     Indication: HYPERTENSION
  9. CALCIMUSC [Concomitant]
     Indication: OSTEOPOROSIS
     Route: 030

REACTIONS (2)
  - DEATH [None]
  - PULMONARY OEDEMA [None]
